FAERS Safety Report 6161851-9 (Version None)
Quarter: 2009Q2

REPORT INFORMATION
  Report Type: 
  Country: None (occurrence: None)
  Receive Date: 20090421
  Receipt Date: 20090416
  Transmission Date: 20091009
  Serious: No
  Sender: FDA-Public Use
  Company Number: A0764585A

PATIENT
  Sex: Female
  Weight: 54 kg

DRUGS (3)
  1. AEROLIN [Suspect]
     Dosage: 5ML THREE TIMES PER DAY
     Dates: start: 20090109, end: 20090116
  2. MULTI-VITAMINS [Concomitant]
     Dates: start: 20081120
  3. FOLIC ACID [Concomitant]
     Dates: start: 20081120

REACTIONS (3)
  - DRUG EXPOSURE DURING PREGNANCY [None]
  - LIVE BIRTH [None]
  - TREMOR [None]
